FAERS Safety Report 9138082 (Version 1)
Quarter: 2013Q1

REPORT INFORMATION
  Report Type: Spontaneous
  Country: US (occurrence: US)
  Receive Date: 20130304
  Receipt Date: 20130304
  Transmission Date: 20140127
  Serious: Yes (Other)
  Sender: FDA-Public Use
  Company Number: PHHY2013US019746

PATIENT
  Age: 43 Year
  Sex: Male

DRUGS (3)
  1. HYDROXYCHLOROQUINE [Suspect]
     Indication: CUTANEOUS SARCOIDOSIS
     Dosage: 200 MG, BID
  2. PREDNISONE [Suspect]
     Indication: CUTANEOUS SARCOIDOSIS
     Dosage: 2.5 MG, EVERY OTHER DAY
  3. CORTICOSTEROIDS [Suspect]
     Route: 026

REACTIONS (7)
  - Hypertension [Unknown]
  - Diabetes mellitus [Unknown]
  - Weight increased [Unknown]
  - Cutaneous sarcoidosis [Recovering/Resolving]
  - Skin lesion [Recovering/Resolving]
  - Foot fracture [Unknown]
  - Drug ineffective [Unknown]
